FAERS Safety Report 9649480 (Version 1)
Quarter: 2013Q4

REPORT INFORMATION
  Report Type: Spontaneous
  Country: US (occurrence: None)
  Receive Date: 20131010
  Receipt Date: 20131010
  Transmission Date: 20140711
  Serious: Yes (Hospitalization)
  Sender: FDA-Public Use
  Company Number: 2013-01627

PATIENT
  Age: 41 Year
  Sex: Male
  Weight: 141 kg

DRUGS (7)
  1. LEVETIRACETAM [Suspect]
     Indication: COMPLEX PARTIAL SEIZURES
  2. LEVETIRACETAM [Suspect]
     Indication: BIPOLAR DISORDER
  3. CARBAMAZEPINE EXTENDED RELEASE [Concomitant]
  4. LAMOTRIGINE(UKNOWN)(LAMOTRIGINE) [Concomitant]
  5. CITALOPRAM(UNKNOWN)(CITALOPRAM) [Concomitant]
  6. AMITRIPTYLINE [Suspect]
  7. CLORAZEPATE [Concomitant]

REACTIONS (3)
  - Intentional overdose [None]
  - Gait disturbance [None]
  - Vision blurred [None]
